FAERS Safety Report 14614777 (Version 2)
Quarter: 2018Q1

REPORT INFORMATION
  Report Type: Spontaneous
  Country: US (occurrence: US)
  Receive Date: 20180308
  Receipt Date: 20180329
  Transmission Date: 20180509
  Serious: Yes (Other)
  Sender: FDA-Public Use
  Company Number: US-VIFOR (INTERNATIONAL) INC.-VIT-2018-02240

PATIENT
  Age: 55 Year
  Sex: Female
  Weight: 61.29 kg

DRUGS (13)
  1. METOPROLOL SUCCINATE. [Concomitant]
     Active Substance: METOPROLOL SUCCINATE
  2. RENVELA [Concomitant]
     Active Substance: SEVELAMER CARBONATE
  3. DOXAZOSIN MESILATE [Concomitant]
     Active Substance: DOXAZOSIN MESYLATE
  4. EPOGEN [Concomitant]
     Active Substance: ERYTHROPOIETIN
  5. FLUDROCORTISONE ACETATE. [Concomitant]
     Active Substance: FLUDROCORTISONE ACETATE
  6. PARACETAMOL~~OXYCODONE HYDROCHLORIDE [Concomitant]
  7. FERROUS SULFATE. [Concomitant]
     Active Substance: FERROUS SULFATE
  8. AMLODIPINE BESILATE [Concomitant]
     Active Substance: AMLODIPINE BESYLATE
  9. FENOFIBRATE. [Concomitant]
     Active Substance: FENOFIBRATE
  10. CITALOPRAM HYDROBROMIDE. [Concomitant]
     Active Substance: CITALOPRAM HYDROBROMIDE
  11. VELTASSA [Suspect]
     Active Substance: PATIROMER
     Indication: HYPERKALAEMIA
     Route: 048
     Dates: start: 20160402, end: 2018
  12. CHANTIX [Concomitant]
     Active Substance: VARENICLINE TARTRATE
  13. RAPAMUNE [Concomitant]
     Active Substance: SIROLIMUS

REACTIONS (2)
  - Renal impairment [Not Recovered/Not Resolved]
  - Fistula [Not Recovered/Not Resolved]

NARRATIVE: CASE EVENT DATE: 20180227
